FAERS Safety Report 7088468-6 (Version None)
Quarter: 2010Q4

REPORT INFORMATION
  Report Type: 
  Country: None (occurrence: None)
  Receive Date: 20101108
  Receipt Date: 20101104
  Transmission Date: 20110411
  Serious: Yes (Other)
  Sender: FDA-Public Use
  Company Number: JP-PFIZER INC-2010108470

PATIENT
  Age: 79 Year
  Sex: Male

DRUGS (5)
  1. NORVASC [Suspect]
     Indication: HYPERTENSION
     Dosage: 5 MG, 1X/DAY
     Route: 048
     Dates: start: 20061201, end: 20100802
  2. NORVASC [Suspect]
     Dosage: 5 MG, 1X/DAY
     Route: 048
     Dates: start: 20100812, end: 20100819
  3. OLMETEC [Suspect]
     Dosage: 10 MG, 1X/DAY
     Route: 048
     Dates: start: 20080801, end: 20100802
  4. OLMETEC [Suspect]
     Dosage: UNK
     Route: 048
     Dates: start: 20100801, end: 20100801
  5. MEVALOTIN [Suspect]
     Dosage: 5 MG, UNK
     Route: 048
     Dates: start: 20100401, end: 20100802

REACTIONS (2)
  - EOSINOPHIL COUNT INCREASED [None]
  - HEPATIC FUNCTION ABNORMAL [None]
